FAERS Safety Report 10703216 (Version 4)
Quarter: 2019Q1

REPORT INFORMATION
  Report Type: Report from Study
  Country: FR (occurrence: FR)
  Receive Date: 20150112
  Receipt Date: 20190110
  Transmission Date: 20190417
  Serious: Yes (Hospitalization, Other)
  Sender: FDA-Public Use
  Company Number: FR-ROCHE-1164761

PATIENT
  Age: 43 Year
  Sex: Female

DRUGS (21)
  1. METHOTREXATE. [Concomitant]
     Active Substance: METHOTREXATE
     Indication: RHEUMATOID ARTHRITIS
     Route: 065
  2. RITUXIMAB. [Suspect]
     Active Substance: RITUXIMAB
     Dosage: D15
     Route: 042
     Dates: start: 20100219
  3. RITUXIMAB. [Suspect]
     Active Substance: RITUXIMAB
     Dosage: SINGLE INFUSION
     Route: 042
     Dates: start: 20140505
  4. RITUXIMAB. [Suspect]
     Active Substance: RITUXIMAB
     Dosage: SINGLE INFUSION
     Route: 042
     Dates: start: 20111005
  5. RITUXIMAB. [Suspect]
     Active Substance: RITUXIMAB
     Dosage: SINGLE INFUSION
     Route: 042
     Dates: start: 20120416
  6. METHOTREXATE. [Concomitant]
     Active Substance: METHOTREXATE
     Dosage: 6 TABLET WEEKLY
     Route: 065
  7. RITUXIMAB. [Suspect]
     Active Substance: RITUXIMAB
     Dosage: D15
     Route: 042
     Dates: start: 20090406
  8. RITUXIMAB. [Suspect]
     Active Substance: RITUXIMAB
     Dosage: D1
     Route: 042
     Dates: start: 20100205
  9. RITUXIMAB. [Suspect]
     Active Substance: RITUXIMAB
     Dosage: D15
     Route: 042
     Dates: start: 20101006
  10. CORTANCYL [Concomitant]
     Active Substance: PREDNISONE
     Dosage: DAILY
     Route: 065
  11. RITUXIMAB. [Suspect]
     Active Substance: RITUXIMAB
     Indication: RHEUMATOID ARTHRITIS
     Dosage: D1
     Route: 042
     Dates: start: 20090323
  12. RITUXIMAB. [Suspect]
     Active Substance: RITUXIMAB
     Dosage: D1
     Route: 042
     Dates: start: 20100921
  13. RITUXIMAB. [Suspect]
     Active Substance: RITUXIMAB
     Dosage: SINGLE INFUSION
     Route: 042
     Dates: start: 20131017
  14. RITUXIMAB. [Suspect]
     Active Substance: RITUXIMAB
     Dosage: SINGLE INFUSION
     Route: 042
     Dates: start: 20141103
  15. RITUXIMAB. [Suspect]
     Active Substance: RITUXIMAB
     Dosage: SINGLE INFUSION
     Route: 042
     Dates: start: 20110407
  16. RITUXIMAB. [Suspect]
     Active Substance: RITUXIMAB
     Dosage: SINGLE INFUSION
     Route: 042
     Dates: start: 20121015
  17. CORTANCYL [Concomitant]
     Active Substance: PREDNISONE
     Dosage: DAILY
     Route: 065
  18. CORTANCYL [Concomitant]
     Active Substance: PREDNISONE
     Dosage: DAILY
     Route: 065
  19. METHOTREXATE. [Concomitant]
     Active Substance: METHOTREXATE
     Route: 065
  20. RITUXIMAB. [Suspect]
     Active Substance: RITUXIMAB
     Dosage: SINGLE INFUSION
     Route: 042
     Dates: start: 20130415
  21. CORTANCYL [Concomitant]
     Active Substance: PREDNISONE
     Dosage: DAILY
     Route: 065

REACTIONS (12)
  - Myalgia [Recovered/Resolved]
  - Infection [Recovering/Resolving]
  - Lung infection [Recovering/Resolving]
  - Abdominal pain lower [Recovered/Resolved]
  - Pneumonia [Unknown]
  - Otitis media acute [Recovered/Resolved]
  - Chest pain [Recovering/Resolving]
  - Genital herpes [Recovered/Resolved]
  - Paronychia [Recovered/Resolved]
  - Bronchitis [Unknown]
  - Abdominal pain [Recovered/Resolved]
  - Craniocerebral injury [Recovering/Resolving]

NARRATIVE: CASE EVENT DATE: 20101001
